FAERS Safety Report 7501027-3 (Version None)
Quarter: 2011Q2

REPORT INFORMATION
  Report Type: 
  Country: None (occurrence: None)
  Receive Date: 20110524
  Receipt Date: 20100527
  Transmission Date: 20111010
  Serious: No
  Sender: FDA-Public Use
  Company Number: US-NOVEN-ALL1-2010-03098

PATIENT

DRUGS (4)
  1. CLONIDINE [Concomitant]
     Dosage: .05 MG, 1X/DAY:QD (MORNING)
     Route: 048
     Dates: start: 20070101
  2. CLONIDINE [Concomitant]
     Dosage: .01 MG, 1X/DAY:QD (EVENING)
     Route: 048
     Dates: start: 20070101
  3. DAYTRANA [Suspect]
     Dosage: UNK MG, 1X/DAY:QD
     Route: 062
     Dates: start: 20070101, end: 20080101
  4. DAYTRANA [Suspect]
     Dosage: UNK MG, 1X/DAY:QD
     Route: 062
     Dates: start: 20080101, end: 20080101

REACTIONS (7)
  - APPLICATION SITE PAIN [None]
  - APPLICATION SITE ERYTHEMA [None]
  - APPLICATION SITE EROSION [None]
  - DRUG ADMINISTERED AT INAPPROPRIATE SITE [None]
  - DRUG INEFFECTIVE [None]
  - OFF LABEL USE [None]
  - DEPRESSED MOOD [None]
